FAERS Safety Report 7496789-8 (Version None)
Quarter: 2011Q2

REPORT INFORMATION
  Report Type: 
  Country: None (occurrence: None)
  Receive Date: 20110516
  Receipt Date: 20110502
  Transmission Date: 20111010
  Serious: Yes (Hospitalization)
  Sender: FDA-Public Use
  Company Number: TPA2011A02181

PATIENT
  Age: 66 Year
  Sex: Male

DRUGS (8)
  1. CORDARONE [Concomitant]
  2. LANTUS [Concomitant]
  3. ADENURIC (FEBUXOSTAT) [Suspect]
     Indication: HYPERURICAEMIA
     Dosage: 80 MG (80 MG, 1 IN 1 D) PER ORAL
     Route: 048
     Dates: start: 20100406, end: 20101213
  4. BISOPROLOL FUMARATE [Concomitant]
  5. FLECAINIDE ACETATE [Concomitant]
  6. APIDRA [Concomitant]
  7. EZETIMIBE/SIMVASTATIN [Concomitant]
  8. VALSARTAN AND HYDROCHLOROTHIAZIDE [Concomitant]

REACTIONS (2)
  - HEPATIC ENZYME INCREASED [None]
  - JAUNDICE [None]
